FAERS Safety Report 9053304 (Version 1)
Quarter: 2013Q1

REPORT INFORMATION
  Report Type: Spontaneous
  Country: US (occurrence: US)
  Receive Date: 20130207
  Receipt Date: 20130207
  Transmission Date: 20140127
  Serious: Yes (Death, Life-Threatening, Hospitalization)
  Sender: FDA-Public Use
  Company Number: US-B.I. PHARMACEUTICALS,INC./RIDGEFIELD-2013-BI-02869GD

PATIENT
  Age: 76 Year
  Sex: Female

DRUGS (3)
  1. PRADAXA [Suspect]
     Route: 048
  2. TOPROL XL [Concomitant]
  3. COLACE [Concomitant]

REACTIONS (8)
  - Brain herniation [Fatal]
  - Subdural haematoma [Fatal]
  - Subarachnoid haemorrhage [Fatal]
  - Neurological decompensation [Unknown]
  - Agitation [Unknown]
  - Fall [Unknown]
  - Laceration [Unknown]
  - Pain [Unknown]
